FAERS Safety Report 5161746-3 (Version None)
Quarter: 2006Q4

REPORT INFORMATION
  Report Type: 
  Country: None (occurrence: None)
  Receive Date: 20061130
  Receipt Date: 20061120
  Transmission Date: 20070319
  Serious: Yes (Hospitalization)
  Sender: FDA-Public Use
  Company Number: FR-GLAXOSMITHKLINE-B0447270A

PATIENT
  Age: 76 Year
  Sex: Male

DRUGS (4)
  1. ZOVIRAX [Suspect]
     Indication: HERPES ZOSTER
     Route: 065
     Dates: start: 20061027, end: 20061031
  2. ZELITREX [Suspect]
     Indication: HERPES ZOSTER
     Route: 065
     Dates: start: 20061101, end: 20061102
  3. PEFLACINE [Suspect]
     Indication: MEDIASTINITIS
     Route: 065
     Dates: start: 20061008, end: 20061031
  4. DALACINE [Concomitant]
     Dates: start: 20061101

REACTIONS (6)
  - ACCIDENTAL OVERDOSE [None]
  - BLOOD CREATININE INCREASED [None]
  - BLOOD UREA INCREASED [None]
  - CONFUSIONAL STATE [None]
  - DEPRESSED LEVEL OF CONSCIOUSNESS [None]
  - TOXIC SKIN ERUPTION [None]
